FAERS Safety Report 4997918-8 (Version None)
Quarter: 2006Q2

REPORT INFORMATION
  Report Type: 
  Country: None (occurrence: None)
  Receive Date: 20060508
  Receipt Date: 20060426
  Transmission Date: 20061013
  Serious: Yes (Hospitalization, Other)
  Sender: FDA-Public Use
  Company Number: 2006057774

PATIENT
  Age: 70 Year
  Sex: Male

DRUGS (3)
  1. CELEBREX [Suspect]
     Indication: ARTHRALGIA
     Dosage: (100 MG)
     Dates: start: 19990920, end: 20010906
  2. PLAVIX [Concomitant]
  3. ASPIRIN [Concomitant]

REACTIONS (4)
  - HEMIANOPIA HOMONYMOUS [None]
  - KNEE ARTHROPLASTY [None]
  - TRANSIENT ISCHAEMIC ATTACK [None]
  - VISUAL ACUITY REDUCED [None]
